FAERS Safety Report 9787831 (Version 3)
Quarter: 2014Q1

REPORT INFORMATION
  Report Type: Spontaneous
  Country: US (occurrence: US)
  Receive Date: 20131230
  Receipt Date: 20140220
  Transmission Date: 20141002
  Serious: No
  Sender: FDA-Public Use
  Company Number: US-PFIZER INC-2013373181

PATIENT
  Age: 55 Year
  Sex: Female
  Weight: 70.7 kg

DRUGS (5)
  1. ZOLOFT [Suspect]
     Indication: BIPOLAR DISORDER
     Dosage: UNK
  2. ZOLOFT [Suspect]
     Indication: DEPRESSION
  3. ADVAIR DISKUS [Suspect]
     Indication: ASTHMA
     Dosage: 250/50MCG , 2X/DAY [FLUTICASONE PROPIONATE 250UG / SALMETEROL XINAFOATE 50UG]
     Dates: start: 2012
  4. VENTOLIN HFA [Suspect]
     Indication: ASTHMA
     Dosage: UNK
     Dates: start: 2012
  5. NORVASC [Concomitant]
     Indication: HYPERTENSION
     Dosage: UNK

REACTIONS (3)
  - Malaise [Unknown]
  - Influenza like illness [Unknown]
  - Off label use [Unknown]
